FAERS Safety Report 9076997 (Version 2)
Quarter: 2013Q1

REPORT INFORMATION
  Report Type: Spontaneous
  Country: EG (occurrence: EG)
  Receive Date: 20130130
  Receipt Date: 20130301
  Transmission Date: 20140127
  Serious: Yes (Death, Other)
  Sender: FDA-Public Use
  Company Number: EG-JNJFOC-20130113093

PATIENT
  Sex: 0

DRUGS (18)
  1. DOXORUBICIN [Suspect]
     Indication: ACUTE LYMPHOCYTIC LEUKAEMIA
     Route: 042
  2. DOXORUBICIN [Suspect]
     Indication: NON-HODGKIN^S LYMPHOMA
     Route: 042
  3. DOXORUBICIN [Suspect]
     Indication: ACUTE LYMPHOCYTIC LEUKAEMIA
     Route: 065
  4. DOXORUBICIN [Suspect]
     Indication: NON-HODGKIN^S LYMPHOMA
     Route: 065
  5. VINCRISTINE [Suspect]
     Indication: NON-HODGKIN^S LYMPHOMA
     Route: 065
  6. VINCRISTINE [Suspect]
     Indication: ACUTE LYMPHOCYTIC LEUKAEMIA
     Route: 065
  7. PREDNISONE [Suspect]
     Indication: ACUTE LYMPHOCYTIC LEUKAEMIA
     Route: 065
  8. PREDNISONE [Suspect]
     Indication: NON-HODGKIN^S LYMPHOMA
     Route: 065
  9. METHOTREXATE [Suspect]
     Indication: NON-HODGKIN^S LYMPHOMA
     Dosage: AT WEEKS 4, 7, 10 AND 13
     Route: 065
  10. METHOTREXATE [Suspect]
     Indication: ACUTE LYMPHOCYTIC LEUKAEMIA
     Dosage: AT WEEKS 4, 7, 10 AND 13
     Route: 065
  11. MERCAPTOPURINE [Suspect]
     Indication: ACUTE LYMPHOCYTIC LEUKAEMIA
     Route: 065
  12. MERCAPTOPURINE [Suspect]
     Indication: NON-HODGKIN^S LYMPHOMA
     Route: 065
  13. ASPARAGINASE [Suspect]
     Indication: ACUTE LYMPHOCYTIC LEUKAEMIA
     Dosage: 25.000 IU/M2, WEEKLY FOR 20 WEEKS STARTING AT WEEK 7
     Route: 030
  14. ASPARAGINASE [Suspect]
     Indication: NON-HODGKIN^S LYMPHOMA
     Dosage: 25.000 IU/M2, WEEKLY FOR 20 WEEKS STARTING AT WEEK 7
     Route: 030
  15. METHOTREXATE [Suspect]
     Indication: PROPHYLAXIS
     Dosage: EXTENDED INTRATHECAL CHEMOTHERAPY
     Route: 037
  16. CYTARABINE [Suspect]
     Indication: PROPHYLAXIS
     Dosage: EXTENDED INTRATHECAL CHEMOTHERAPY
     Route: 037
  17. RADIATION THERAPY [Suspect]
     Indication: PROPHYLAXIS
     Dosage: CRANIAL RADIATION (1800 CGY)
     Route: 065
  18. LEUCOVORIN [Concomitant]
     Indication: SALVAGE THERAPY
     Dosage: LEUCOVORIN RESCUE, GIVEN AT WEEKS 4,7, 10 AND 13 OF THERAPY
     Route: 065

REACTIONS (8)
  - Febrile neutropenia [Fatal]
  - Sepsis [Fatal]
  - Non-Hodgkin^s lymphoma [Unknown]
  - Precursor T-lymphoblastic lymphoma/leukaemia recurrent [Unknown]
  - Non-Hodgkin^s lymphoma [Unknown]
  - Precursor T-lymphoblastic lymphoma/leukaemia recurrent [Unknown]
  - Non-Hodgkin^s lymphoma [Unknown]
  - Precursor T-lymphoblastic lymphoma/leukaemia recurrent [Unknown]
